FAERS Safety Report 5088343-2 (Version None)
Quarter: 2006Q3

REPORT INFORMATION
  Report Type: 
  Country: None (occurrence: None)
  Receive Date: 20060821
  Receipt Date: 20060808
  Transmission Date: 20061208
  Serious: Yes (Hospitalization)
  Sender: FDA-Public Use
  Company Number: CIP06001846

PATIENT
  Age: 75 Year
  Sex: Male

DRUGS (3)
  1. ACTONEL [Suspect]
     Indication: OSTEITIS DEFORMANS
     Dosage: 30 MG DAILY, ORAL
     Route: 048
  2. OXYCONTIN [Concomitant]
  3. DRUG NOS [Concomitant]

REACTIONS (1)
  - FALL [None]
